FAERS Safety Report 5650221-5 (Version None)
Quarter: 2008Q1

REPORT INFORMATION
  Report Type: 
  Country: None (occurrence: None)
  Receive Date: 20080303
  Receipt Date: 20080221
  Transmission Date: 20080703
  Serious: Yes (Life-Threatening, Hospitalization)
  Sender: FDA-Public Use
  Company Number: S08-FRA-00632-01

PATIENT
  Age: 27 Year
  Sex: Female

DRUGS (6)
  1. ESCITALOPRAM [Suspect]
     Indication: DEPRESSION
     Dates: start: 20071020, end: 20071020
  2. ESCITALOPRAM [Suspect]
     Indication: DEPRESSION
     Dosage: 10 MG QD;PO
     Route: 048
     Dates: start: 20070201, end: 20071019
  3. LAMALINE [Suspect]
     Indication: ARTHRALGIA
     Dosage: 1 TID;PO
     Route: 048
     Dates: start: 20070601, end: 20071021
  4. VENTOLIN [Concomitant]
  5. CEFUROXIME [Concomitant]
  6. PREDNISOLONE [Concomitant]

REACTIONS (3)
  - HEPATIC FAILURE [None]
  - HEPATITIS ACUTE [None]
  - INTENTIONAL OVERDOSE [None]
